FAERS Safety Report 9972856 (Version 2)
Quarter: 2014Q1

REPORT INFORMATION
  Report Type: Spontaneous
  Country: JP (occurrence: JP)
  Receive Date: 20140306
  Receipt Date: 20140317
  Transmission Date: 20141002
  Serious: Yes (Death)
  Sender: FDA-Public Use
  Company Number: JP-TEVA-467205ISR

PATIENT
  Age: 65 Year
  Sex: Female

DRUGS (8)
  1. CISPLATIN [Suspect]
     Indication: CERVIX CARCINOMA
     Dosage: 504 MG/BODY CUMULATIVE DOSE
  2. PACLITAXEL [Suspect]
     Indication: CERVIX CARCINOMA
     Dosage: 2106 MG/BODY CUMULATIVE DOSE
  3. ETOPOSIDE [Suspect]
     Indication: CERVIX CARCINOMA
  4. CARBOPLATIN [Suspect]
     Indication: CERVIX CARCINOMA
     Dosage: 3340 MG/BODY CUMULATIVE DOSE
  5. DOCETAXEL [Suspect]
     Indication: CERVIX CARCINOMA
  6. IFOSFAMIDE [Suspect]
     Indication: CERVIX CARCINOMA
  7. NEDAPLATIN [Suspect]
     Indication: CERVIX CARCINOMA
  8. FLUOROURACIL [Concomitant]

REACTIONS (3)
  - Second primary malignancy [Fatal]
  - Acute myeloid leukaemia [Fatal]
  - Myelodysplastic syndrome [Fatal]
